FAERS Safety Report 8777648 (Version 3)
Quarter: 2013Q1

REPORT INFORMATION
  Report Type: Spontaneous
  Country: ZA (occurrence: ZA)
  Receive Date: 20120904
  Receipt Date: 20130218
  Transmission Date: 20140127
  Serious: Yes (Hospitalization)
  Sender: FDA-Public Use
  Company Number: ZA-ELI_LILLY_AND_COMPANY-ZA201208004559

PATIENT
  Age: 41 Year
  Sex: Female

DRUGS (2)
  1. CYMBALTA [Suspect]
     Indication: BACK PAIN
     Dosage: 30 MG, QD
     Route: 048
     Dates: start: 20120723, end: 20120812
  2. LYRICA [Concomitant]

REACTIONS (10)
  - Panic attack [Unknown]
  - Oral pain [Unknown]
  - Speech disorder [Unknown]
  - Odynophagia [Unknown]
  - Drug dose omission [Unknown]
  - Arachnoid cyst [Unknown]
  - Oromandibular dystonia [Not Recovered/Not Resolved]
  - Tongue spasm [Unknown]
  - Nausea [Unknown]
  - Tardive dyskinesia [Unknown]
